FAERS Safety Report 13676886 (Version 1)
Quarter: 2017Q2

REPORT INFORMATION
  Report Type: Spontaneous
  Country: US (occurrence: US)
  Receive Date: 20170622
  Receipt Date: 20170622
  Transmission Date: 20170830
  Serious: No
  Sender: FDA-Public Use
  Company Number: US-BAYER-2017-119313

PATIENT
  Sex: Female
  Weight: 56.96 kg

DRUGS (2)
  1. MIRALAX [Suspect]
     Active Substance: POLYETHYLENE GLYCOL 3350
     Indication: GASTROINTESTINAL DISORDER
     Dosage: UNK UNK, QD
     Route: 048
  2. PREMARIN [ESTROGENS CONJUGATED] [Concomitant]
     Dosage: UNK

REACTIONS (4)
  - Drug prescribing error [Unknown]
  - Vulvovaginal pain [Not Recovered/Not Resolved]
  - Product use issue [Unknown]
  - Vulvovaginal rash [Not Recovered/Not Resolved]

NARRATIVE: CASE EVENT DATE: 201704
